FAERS Safety Report 8214093-7 (Version None)
Quarter: 2012Q1

REPORT INFORMATION
  Report Type: 
  Country: None (occurrence: None)
  Receive Date: 20120314
  Receipt Date: 20120314
  Transmission Date: 20120608
  Serious: Yes (Hospitalization)
  Sender: FDA-Public Use
  Company Number: None

PATIENT
  Sex: Male
  Weight: 106.8 kg

DRUGS (4)
  1. LEUCOVORIN CALCIUM [Suspect]
     Dosage: 1840 MG
     Dates: end: 20120309
  2. ELOXATIN [Suspect]
     Dosage: 290 MG
     Dates: end: 20120309
  3. BEVACIZUMAB (RHUMAB VEGF) [Suspect]
     Dosage: 1605 MG
     Dates: end: 20120309
  4. FLUOROURACIL [Suspect]
     Dosage: 12880 MG
     Dates: end: 20120309

REACTIONS (2)
  - CHILLS [None]
  - BACTERAEMIA [None]
